FAERS Safety Report 24131062 (Version 2)
Quarter: 2025Q2

REPORT INFORMATION
  Report Type: Spontaneous
  Country: FR (occurrence: FR)
  Receive Date: 20240724
  Receipt Date: 20250417
  Transmission Date: 20250717
  Serious: Yes (Life-Threatening, Hospitalization, Other)
  Sender: AUROBINDO
  Company Number: FR-ARROW-2012-19352

PATIENT
  Age: 54 Year
  Sex: Male

DRUGS (6)
  1. AMOXICILLIN [Suspect]
     Active Substance: AMOXICILLIN
     Indication: Oropharyngeal pain
     Dosage: 1 GRAM, TWO TIMES A DAY
     Route: 065
  2. LAMOTRIGINE [Suspect]
     Active Substance: LAMOTRIGINE
     Indication: Product used for unknown indication
     Dosage: 50 MILLIGRAM, ONCE A DAY
     Route: 065
  3. PREDNISOLONE [Concomitant]
     Active Substance: PREDNISOLONE
     Indication: Product used for unknown indication
     Dosage: 20 MILLIGRAM, ONCE A DAY
     Route: 065
  4. FENTANYL [Concomitant]
     Active Substance: FENTANYL
     Indication: Product used for unknown indication
     Dosage: 25 MICROGRAM, EVERY HOUR
     Route: 062
  5. CLONAZEPAM [Concomitant]
     Active Substance: CLONAZEPAM
     Indication: Product used for unknown indication
     Dosage: 1 MILLIGRAM, 3 TIMES A DAY
     Route: 065
  6. PAROXETINE [Concomitant]
     Active Substance: PAROXETINE
     Indication: Depression
     Dosage: 10 MILLIGRAM, ONCE A DAY
     Route: 065

REACTIONS (36)
  - Stevens-Johnson syndrome [Recovered/Resolved]
  - Toxic epidermal necrolysis [Recovered/Resolved with Sequelae]
  - Hypovolaemic shock [Recovered/Resolved]
  - Pneumonia klebsiella [Recovered/Resolved]
  - Septic shock [Recovered/Resolved]
  - Respiratory failure [Recovered/Resolved]
  - Epidermal necrosis [Recovered/Resolved]
  - Multiple organ dysfunction syndrome [Recovered/Resolved]
  - Dry eye [Recovered/Resolved]
  - Blister [Recovered/Resolved]
  - Eye pain [Recovered/Resolved]
  - Skin exfoliation [Recovered/Resolved with Sequelae]
  - Pyrexia [Recovered/Resolved]
  - Erythema [Recovered/Resolved]
  - Rash macular [Recovered/Resolved with Sequelae]
  - Eye discharge [Recovered/Resolved]
  - Pigmentation disorder [Recovering/Resolving]
  - Nikolsky^s sign positive [Recovered/Resolved with Sequelae]
  - Pain of skin [Recovered/Resolved]
  - Mucosal erosion [Recovered/Resolved]
  - Stupor [Recovered/Resolved]
  - Skin burning sensation [Recovered/Resolved]
  - Rash [Recovering/Resolving]
  - Pemphigus [Unknown]
  - Staphylococcal scalded skin syndrome [Unknown]
  - Acute generalised exanthematous pustulosis [Unknown]
  - Acute graft versus host disease [Unknown]
  - Neoplasm malignant [Unknown]
  - Paraneoplastic pemphigus [Unknown]
  - Macule [Recovered/Resolved]
  - Tachycardia [Recovered/Resolved]
  - Oral pain [Unknown]
  - Oropharyngeal pain [Unknown]
  - Purpura [Recovered/Resolved]
  - Mouth ulceration [Recovered/Resolved]
  - Condition aggravated [Unknown]
